FAERS Safety Report 7900835-4 (Version None)
Quarter: 2011Q4

REPORT INFORMATION
  Report Type: 
  Country: None (occurrence: None)
  Receive Date: 20111108
  Receipt Date: 20111108
  Transmission Date: 20120403
  Serious: No
  Sender: FDA-Public Use
  Company Number: None

PATIENT
  Age: 52 Year
  Sex: Female
  Weight: 52.163 kg

DRUGS (1)
  1. CIPROFLOXACIN HCL [Suspect]
     Indication: URINARY TRACT INFECTION
     Dosage: 500 MG
     Route: 048
     Dates: start: 20111012, end: 20111021

REACTIONS (20)
  - NIGHTMARE [None]
  - INSOMNIA [None]
  - VISION BLURRED [None]
  - SENSATION OF HEAVINESS [None]
  - ERUCTATION [None]
  - BURNING SENSATION [None]
  - EAR DISCOMFORT [None]
  - POLLAKIURIA [None]
  - DECREASED APPETITE [None]
  - WEIGHT DECREASED [None]
  - FATIGUE [None]
  - DRY THROAT [None]
  - LETHARGY [None]
  - BACK PAIN [None]
  - ANXIETY [None]
  - GASTRIC DISORDER [None]
  - PANIC REACTION [None]
  - FEELING ABNORMAL [None]
  - IRRITABILITY [None]
  - ASTHENIA [None]
